FAERS Safety Report 9298210 (Version 1)
Quarter: 2012Q4

REPORT INFORMATION
  Report Type: Spontaneous
  Country: US (occurrence: None)
  Receive Date: 20121009
  Receipt Date: 20121009
  Transmission Date: 20130627
  Serious: Yes (Other)
  Sender: FDA-Public Use
  Company Number: ACO_32118_2012

PATIENT
  Age: 68 Year
  Sex: Female
  Weight: 74.8 kg

DRUGS (14)
  1. AMPYRA (DALFAMPRIDINE) TABLET, 10MG [Suspect]
     Indication: GAIT DISTURBANCE
     Route: 048
     Dates: start: 20120918, end: 20120918
  2. AMPYRA (DALFAMPRIDINE) TABLET, 10MG [Suspect]
     Indication: GAIT DISTURBANCE
     Route: 048
     Dates: start: 20120919, end: 20120923
  3. AMPYRA (DALFAMPRIDINE) TABLET, 10MG [Suspect]
     Indication: GAIT DISTURBANCE
     Route: 048
     Dates: start: 20120924
  4. DYAZIDE (HYDROCHLOROTHIAZIDE, TRIAMTERENE) [Concomitant]
  5. VERAPAMIL (VERAPAMIL HYDROCHLORIDE) [Concomitant]
  6. RANITIDINE (RANITIDINE HYDROCHLORIDE) [Concomitant]
  7. ESTRADIOL (ESTRADIOL VALERATE) [Concomitant]
  8. CITALOPRAM (CITALOPRAM HYDROBROMIDE) [Concomitant]
  9. MELOXICAM (MELOXICAM) [Concomitant]
  10. EQUATE STOOL SOFTENER (DOCUSATE SODIUM) [Concomitant]
  11. ACIDOPHILUS (LACTOBACILLUS ACIDOPHILUS) [Concomitant]
  12. VITAMIN D (ERGOCALCIFEROL) [Concomitant]
  13. ASPIRIN (ACETYLSALICYLIC ACID) [Concomitant]
  14. ALL OTHER THERAPEUTIC PRODUCTS [Concomitant]

REACTIONS (9)
  - Loss of consciousness [None]
  - Fall [None]
  - Throat irritation [None]
  - Dizziness [None]
  - Insomnia [None]
  - Back pain [None]
  - Asthenia [None]
  - Balance disorder [None]
  - Inappropriate schedule of drug administration [None]
